FAERS Safety Report 9384062 (Version 2)
Quarter: 2013Q3

REPORT INFORMATION
  Report Type: Spontaneous
  Country: US (occurrence: US)
  Receive Date: 20130705
  Receipt Date: 20130911
  Transmission Date: 20140515
  Serious: No
  Sender: FDA-Public Use
  Company Number: US-B.I. PHARMACEUTICALS,INC./RIDGEFIELD-2013-BI-19101BP

PATIENT
  Age: 84 Year
  Sex: Male

DRUGS (5)
  1. PRADAXA [Suspect]
     Indication: ATRIAL FIBRILLATION
     Dosage: 150 MG
     Route: 048
     Dates: start: 201306, end: 20130824
  2. FUROSEMIDE [Concomitant]
     Dosage: 40 MG
     Route: 048
  3. SIMVASTATIN [Concomitant]
     Indication: BLOOD CHOLESTEROL INCREASED
     Dosage: 40 MG
     Route: 048
  4. TAMSULOSIN [Concomitant]
     Indication: PROSTATIC DISORDER
     Route: 048
  5. FINASTERIDE [Concomitant]
     Dosage: 5 MG
     Route: 048

REACTIONS (3)
  - Rash macular [Not Recovered/Not Resolved]
  - Haematochezia [Unknown]
  - Abdominal discomfort [Not Recovered/Not Resolved]
